FAERS Safety Report 16956885 (Version 1)
Quarter: 2019Q4

REPORT INFORMATION
  Report Type: Spontaneous
  Country: US (occurrence: US)
  Receive Date: 20191023
  Receipt Date: 20191023
  Transmission Date: 20200122
  Serious: Yes (Life-Threatening, Hospitalization, Disabling)
  Sender: FDA-Public Use
  Company Number: None

PATIENT
  Age: 81 Year
  Sex: Female
  Weight: 100 kg

DRUGS (6)
  1. METOPROLOL. [Concomitant]
     Active Substance: METOPROLOL
     Dates: start: 20121002
  2. METFORMIN [Concomitant]
     Active Substance: METFORMIN HYDROCHLORIDE
     Dates: start: 20121008
  3. APIXABAN [Suspect]
     Active Substance: APIXABAN
     Indication: ATRIAL FIBRILLATION
     Route: 048
     Dates: start: 20160601, end: 20190825
  4. PRAVASTATIN. [Concomitant]
     Active Substance: PRAVASTATIN
     Dates: start: 20121002
  5. LISINOPRIL. [Concomitant]
     Active Substance: LISINOPRIL
     Dates: start: 20121002
  6. LATANOPROST. [Concomitant]
     Active Substance: LATANOPROST
     Dates: start: 20101022

REACTIONS (8)
  - Hypertension [None]
  - Facial paralysis [None]
  - Brain oedema [None]
  - Haemorrhage intracranial [None]
  - Hemiparesis [None]
  - Dysphagia [None]
  - Aphasia [None]
  - Gait disturbance [None]

NARRATIVE: CASE EVENT DATE: 20190826
